FAERS Safety Report 10583974 (Version 1)
Quarter: 2014Q4

REPORT INFORMATION
  Report Type: Spontaneous
  Country: US (occurrence: None)
  Receive Date: 20141113
  Receipt Date: 20141113
  Transmission Date: 20150529
  Serious: No
  Sender: FDA-Public Use
  Company Number: None

PATIENT
  Age: 28 Year
  Sex: Female
  Weight: 63.5 kg

DRUGS (1)
  1. METRONIDAZOLE. [Suspect]
     Active Substance: METRONIDAZOLE
     Dosage: 2 PILLS  TWICE DAILY  TAKEN BY MOUTH
     Route: 048

REACTIONS (4)
  - Back pain [None]
  - Neck pain [None]
  - Muscle tightness [None]
  - Back disorder [None]

NARRATIVE: CASE EVENT DATE: 20141112
